FAERS Safety Report 4639569-0 (Version None)
Quarter: 2005Q2

REPORT INFORMATION
  Report Type: 
  Country: None (occurrence: None)
  Receive Date: 20050418
  Receipt Date: 20050411
  Transmission Date: 20051028
  Serious: Yes (Life-Threatening, Hospitalization)
  Sender: FDA-Public Use
  Company Number: 2005AL001355

PATIENT
  Age: 82 Year
  Sex: Female

DRUGS (3)
  1. CITALOPRAM HYDROBROMIDE TABLETS, 20 MG (PUREPAC) [Suspect]
     Dosage: 1.6 GM; PO
     Route: 048
  2. LANSOPRAZOLE [Concomitant]
  3. ATORVASTATIN CALCIUM [Concomitant]

REACTIONS (11)
  - BLOOD PH INCREASED [None]
  - BLOOD PRESSURE INCREASED [None]
  - BUNDLE BRANCH BLOCK LEFT [None]
  - CARDIOTOXICITY [None]
  - DRUG LEVEL ABOVE THERAPEUTIC [None]
  - ELECTROCARDIOGRAM QT CORRECTED INTERVAL PROLONGED [None]
  - GRAND MAL CONVULSION [None]
  - NODAL ARRHYTHMIA [None]
  - OVERDOSE [None]
  - SINUS BRADYCARDIA [None]
  - SUICIDE ATTEMPT [None]
